FAERS Safety Report 10874854 (Version 1)
Quarter: 2015Q1

REPORT INFORMATION
  Report Type: Spontaneous
  Country: GB (occurrence: GB)
  Receive Date: 20150227
  Receipt Date: 20150227
  Transmission Date: 20150721
  Serious: Yes (Other)
  Sender: FDA-Public Use
  Company Number: GB-IMPAX LABORATORIES, INC-2015-IPXL-00218

PATIENT
  Age: 23 Year
  Sex: Male

DRUGS (3)
  1. CABERGOLINE. [Suspect]
     Active Substance: CABERGOLINE
     Indication: PROLACTINOMA
     Dosage: 250 ?G, 2 /WEEK
     Route: 065
  2. CABERGOLINE. [Suspect]
     Active Substance: CABERGOLINE
     Dosage: 500 ?G, 3 /WEEK
     Route: 065
  3. CABERGOLINE. [Suspect]
     Active Substance: CABERGOLINE
     Dosage: 500 ?G, DAILY
     Route: 065

REACTIONS (3)
  - Cerebrospinal fluid leakage [Recovered/Resolved]
  - Diabetes insipidus [Unknown]
  - Drug resistance [Unknown]
